FAERS Safety Report 7178704-X (Version None)
Quarter: 2010Q4

REPORT INFORMATION
  Report Type: 
  Country: None (occurrence: None)
  Receive Date: 20101221
  Receipt Date: 20101214
  Transmission Date: 20110411
  Serious: Yes (Hospitalization)
  Sender: FDA-Public Use
  Company Number: TR-PAR PHARMACEUTICAL, INC-2010SCPR002347

PATIENT
  Age: 33 Year
  Sex: Female

DRUGS (2)
  1. DOXYCYCLINE [Suspect]
     Indication: VAGINAL INFECTION
     Dosage: 500 MG, TWICE DAILY
     Route: 065
  2. ORNIDAZOLE [Suspect]
     Indication: VAGINAL INFECTION
     Dosage: 500 MG, TWICE DAILY
     Route: 065

REACTIONS (3)
  - BLOOD CHOLESTEROL DECREASED [None]
  - HAEMOGLOBIN DECREASED [None]
  - PANCREATITIS ACUTE [None]
